FAERS Safety Report 9254548 (Version 1)
Quarter: 2013Q2

REPORT INFORMATION
  Report Type: Spontaneous
  Country: US (occurrence: US)
  Receive Date: 20130425
  Receipt Date: 20130425
  Transmission Date: 20140414
  Serious: No
  Sender: FDA-Public Use
  Company Number: US-GLAXOSMITHKLINE-A1017510A

PATIENT
  Age: 80 Year
  Sex: Male

DRUGS (2)
  1. HORIZANT [Suspect]
     Indication: PRODUCT USED FOR UNKNOWN INDICATION
     Dosage: 600MG AT NIGHT
     Route: 048
     Dates: start: 20130319
  2. CASODEX [Concomitant]

REACTIONS (2)
  - Adverse event [Unknown]
  - Somnolence [Unknown]
